FAERS Safety Report 16464912 (Version 2)
Quarter: 2019Q3

REPORT INFORMATION
  Report Type: Spontaneous
  Country: US (occurrence: US)
  Receive Date: 20190621
  Receipt Date: 20190724
  Transmission Date: 20191004
  Serious: Yes (Hospitalization, Other)
  Sender: FDA-Public Use
  Company Number: US-PARI RESPIRATORY EQUIPMENT, INC.-2019PAR00051

PATIENT
  Age: 2 Year
  Sex: Female
  Weight: 11.34 kg

DRUGS (19)
  1. CALCITRIOL. [Concomitant]
     Active Substance: CALCITRIOL
  2. OMEPRAZOLE-SODIUM BICARBONATE [Concomitant]
     Active Substance: OMEPRAZOLE\SODIUM BICARBONATE
  3. CALCIUM CARBONATE. [Concomitant]
     Active Substance: CALCIUM CARBONATE
  4. HIZENTRA [Concomitant]
     Active Substance: HUMAN IMMUNOGLOBULIN G
  5. PULMICORT TURBUHALER [Concomitant]
     Active Substance: BUDESONIDE
  6. ITRACONAZOLE. [Concomitant]
     Active Substance: ITRACONAZOLE
  7. LASIX [Concomitant]
     Active Substance: FUROSEMIDE
  8. ALBUTEROL SULFATE. [Concomitant]
     Active Substance: ALBUTEROL SULFATE
  9. KITABIS PAK [Suspect]
     Active Substance: TOBRAMYCIN
     Indication: PROPHYLAXIS
     Dosage: 300 MG, 2X/DAY 2 WKS ON, 2 WKS OFF
     Dates: start: 201901
  10. SILVER SULFADIAZINE. [Concomitant]
     Active Substance: SILVER SULFADIAZINE
  11. AZITHROMYCIN ANHYDROUS. [Concomitant]
     Active Substance: AZITHROMYCIN ANHYDROUS
  12. POTASSIUM [Concomitant]
     Active Substance: POTASSIUM
  13. NYSTATIN-TRIAMCINOLONE [Concomitant]
  14. KEPPRA [Concomitant]
     Active Substance: LEVETIRACETAM
  15. VITAMIN D-400 [Concomitant]
  16. ZYRTEC [Concomitant]
     Active Substance: CETIRIZINE HYDROCHLORIDE
  17. POLY-VI-SOL WITH IRON [Concomitant]
     Active Substance: IRON\VITAMINS
  18. ENALAPRIL-HYDROCLOROTHIAZIDE [Concomitant]
  19. GLYCOPYRROLATE. [Concomitant]
     Active Substance: GLYCOPYRROLATE

REACTIONS (5)
  - B-lymphocyte count decreased [Unknown]
  - Reticulocyte count decreased [Unknown]
  - Chemotherapy [Recovered/Resolved]
  - Haematocrit decreased [Unknown]
  - Off label use [Unknown]

NARRATIVE: CASE EVENT DATE: 2019
